FAERS Safety Report 6531873-4 (Version None)
Quarter: 2010Q1

REPORT INFORMATION
  Report Type: 
  Country: None (occurrence: None)
  Receive Date: 20100108
  Receipt Date: 20091230
  Transmission Date: 20100710
  Serious: Yes (Other)
  Sender: FDA-Public Use
  Company Number: TR-MEDIMMUNE-MEDI-0010073

PATIENT
  Sex: Female
  Weight: 3 kg

DRUGS (2)
  1. SYNAGIS [Suspect]
     Route: 030
     Dates: start: 20091012, end: 20091012
  2. SYNAGIS [Suspect]
     Route: 030
     Dates: start: 20091113, end: 20091113

REACTIONS (2)
  - APNOEIC ATTACK [None]
  - DRUG DISPENSING ERROR [None]
